FAERS Safety Report 5067385-7 (Version None)
Quarter: 2006Q3

REPORT INFORMATION
  Report Type: 
  Country: None (occurrence: None)
  Receive Date: 20060714
  Receipt Date: 20060605
  Transmission Date: 20061208
  Serious: No
  Sender: FDA-Public Use
  Company Number: 2006SP002311

PATIENT
  Age: 42 Year
  Sex: Female

DRUGS (11)
  1. LUNESTA [Suspect]
     Indication: INSOMNIA
     Dosage: 3 MG;HS;ORAL
     Route: 048
     Dates: start: 20060602, end: 20060604
  2. NEURONTIN [Concomitant]
  3. VISTARIL [Concomitant]
  4. ZANAFLEX [Concomitant]
  5. IBUPROFEN [Concomitant]
  6. ANERGE [Concomitant]
  7. CLARITIN [Concomitant]
  8. VITAMIN B-12 [Concomitant]
  9. EFFEXOR [Concomitant]
  10. DETROL [Concomitant]
  11. ALBUTEROL SPIROS [Concomitant]

REACTIONS (7)
  - DIZZINESS [None]
  - DRUG INEFFECTIVE [None]
  - DYSGEUSIA [None]
  - HEADACHE [None]
  - INSOMNIA [None]
  - NAUSEA [None]
  - RESTLESSNESS [None]
